FAERS Safety Report 12404768 (Version 1)
Quarter: 2016Q2

REPORT INFORMATION
  Report Type: Spontaneous
  Country: US (occurrence: US)
  Receive Date: 20160525
  Receipt Date: 20160525
  Transmission Date: 20160815
  Serious: Yes (Other)
  Sender: FDA-Public Use
  Company Number: US-JNJFOC-20160518080

PATIENT
  Age: 35 Year
  Sex: Female
  Weight: 58.97 kg

DRUGS (1)
  1. REMICADE [Suspect]
     Active Substance: INFLIXIMAB
     Indication: COLITIS ULCERATIVE
     Route: 042
     Dates: start: 201410, end: 201511

REACTIONS (10)
  - Dizziness [Unknown]
  - Feeling abnormal [Unknown]
  - Product use issue [Unknown]
  - Paraesthesia [Unknown]
  - Off label use [Unknown]
  - Psoriasis [Recovered/Resolved]
  - Infusion related reaction [Unknown]
  - Pain [Unknown]
  - Blindness [Unknown]
  - Alopecia [Unknown]

NARRATIVE: CASE EVENT DATE: 201410
